FAERS Safety Report 5453084-6 (Version None)
Quarter: 2007Q3

REPORT INFORMATION
  Report Type: 
  Country: None (occurrence: None)
  Receive Date: 20070914
  Receipt Date: 20070904
  Transmission Date: 20080115
  Serious: Yes (Other)
  Sender: FDA-Public Use
  Company Number: FR-PFIZER INC-2007075180

PATIENT
  Sex: Male

DRUGS (11)
  1. LYRICA [Suspect]
     Indication: HERPES ZOSTER
     Dates: start: 20061101, end: 20070101
  2. CRESTOR [Concomitant]
  3. COVERSYL [Concomitant]
  4. CELIPROLOL [Concomitant]
  5. FUROSEMIDE [Concomitant]
  6. DIAMICRON [Concomitant]
  7. LANTUS [Concomitant]
  8. PLAVIX [Concomitant]
  9. ALL OTHER THERAPEUTIC PRODUCTS [Concomitant]
  10. ACETAMINOPHEN W/ PROPOXYPHENE HCL [Concomitant]
  11. LEVOTHYROX [Concomitant]

REACTIONS (5)
  - ABDOMINAL PAIN [None]
  - BLOOD CHOLESTEROL INCREASED [None]
  - HEPATIC STEATOSIS [None]
  - HEPATOMEGALY [None]
  - HYPERTRIGLYCERIDAEMIA [None]
